FAERS Safety Report 5951706-4 (Version None)
Quarter: 2008Q4

REPORT INFORMATION
  Report Type: 
  Country: None (occurrence: None)
  Receive Date: 20081022
  Receipt Date: 20080528
  Transmission Date: 20090506
  Serious: No
  Sender: FDA-Public Use
  Company Number: ALL1-2008-01626

PATIENT
  Age: 25 Year
  Sex: Female
  Weight: 77.1 kg

DRUGS (2)
  1. VYVANSE [Suspect]
     Indication: ATTENTION DEFICIT/HYPERACTIVITY DISORDER
     Dosage: 50 MG, 1X/DAY:QD, ORAL ; 70 MG, 1X/DAY:QD, ORAL
     Route: 048
     Dates: start: 20070901, end: 20071001
  2. VYVANSE [Suspect]
     Indication: ATTENTION DEFICIT/HYPERACTIVITY DISORDER
     Dosage: 50 MG, 1X/DAY:QD, ORAL ; 70 MG, 1X/DAY:QD, ORAL
     Route: 048
     Dates: start: 20071001, end: 20071101

REACTIONS (3)
  - DRUG EFFECT DECREASED [None]
  - FATIGUE [None]
  - SOMNOLENCE [None]
